FAERS Safety Report 6072268-X (Version None)
Quarter: 2009Q1

REPORT INFORMATION
  Report Type: 
  Country: None (occurrence: None)
  Receive Date: 20090206
  Receipt Date: 20090206
  Transmission Date: 20090719
  Serious: Yes (Death, Life-Threatening, Hospitalization)
  Sender: FDA-Public Use
  Company Number: None

PATIENT
  Age: 16 Year
  Sex: Male
  Weight: 66 kg

DRUGS (9)
  1. FLUOXETINE [Suspect]
     Indication: DEPRESSION
     Dosage: 10 MG DAILY PO
     Route: 048
     Dates: start: 20081111, end: 20081202
  2. PREDNISONE [Concomitant]
  3. CELLCEPT [Concomitant]
  4. FUROSEMIDE [Concomitant]
  5. LISINOPRIL [Concomitant]
  6. LABETOLOL [Concomitant]
  7. NORVASC [Concomitant]
  8. OMEPRAZOLE [Concomitant]
  9. TUMS [Concomitant]

REACTIONS (4)
  - ANOXIC ENCEPHALOPATHY [None]
  - ASPHYXIA [None]
  - CARDIAC ARREST [None]
  - COMPLETED SUICIDE [None]
